FAERS Safety Report 16243725 (Version 1)
Quarter: 2019Q2

REPORT INFORMATION
  Report Type: Spontaneous
  Country: US (occurrence: US)
  Receive Date: 20190426
  Receipt Date: 20190426
  Transmission Date: 20190711
  Serious: Yes (Other)
  Sender: FDA-Public Use
  Company Number: US-PFIZER INC-2019173145

PATIENT
  Age: 72 Year
  Sex: Male

DRUGS (1)
  1. DOFETILIDE. [Suspect]
     Active Substance: DOFETILIDE
     Indication: ATRIAL FIBRILLATION
     Dosage: UNK

REACTIONS (5)
  - Joint swelling [Not Recovered/Not Resolved]
  - Atrial fibrillation [Unknown]
  - Dyspnoea [Unknown]
  - Oedema peripheral [Unknown]
  - Dyspnoea exertional [Recovering/Resolving]
